FAERS Safety Report 14685056 (Version 3)
Quarter: 2018Q3

REPORT INFORMATION
  Report Type: Spontaneous
  Country: US (occurrence: US)
  Receive Date: 20180327
  Receipt Date: 20180927
  Transmission Date: 20181010
  Serious: No
  Sender: FDA-Public Use
  Company Number: US-CLOVIS ONCOLOGY-CLO-2018-000057

PATIENT
  Age: 39 Year
  Sex: Female

DRUGS (1)
  1. RUBRACA [Suspect]
     Active Substance: RUCAPARIB CAMSYLATE
     Indication: OVARIAN CANCER
     Dosage: 600 MG, BID
     Route: 048
     Dates: start: 20180112

REACTIONS (19)
  - Night sweats [Recovered/Resolved]
  - Muscle tightness [Recovered/Resolved]
  - Alopecia [Unknown]
  - Asthenia [Recovering/Resolving]
  - Abdominal pain upper [Recovering/Resolving]
  - Vomiting [Recovering/Resolving]
  - Arthralgia [Recovering/Resolving]
  - Dysgeusia [Recovering/Resolving]
  - Gastrooesophageal reflux disease [Recovering/Resolving]
  - Head discomfort [Recovering/Resolving]
  - Fatigue [Recovering/Resolving]
  - Liver function test increased [Not Recovered/Not Resolved]
  - Respiratory tract congestion [Recovered/Resolved]
  - Hypermetropia [Not Recovered/Not Resolved]
  - Abdominal pain lower [Recovered/Resolved]
  - Dyspepsia [Recovering/Resolving]
  - Nausea [Recovered/Resolved]
  - Decreased appetite [Recovering/Resolving]
  - Constipation [Recovered/Resolved]

NARRATIVE: CASE EVENT DATE: 2018
